FAERS Safety Report 11330032 (Version 2)
Quarter: 2015Q3

REPORT INFORMATION
  Report Type: Spontaneous
  Country: BR (occurrence: BR)
  Receive Date: 20150803
  Receipt Date: 20150814
  Transmission Date: 20151125
  Serious: Yes (Death, Hospitalization)
  Sender: FDA-Public Use
  Company Number: BR-PFIZER INC-2014306403

PATIENT
  Age: 62 Year
  Sex: Male
  Weight: 52 kg

DRUGS (6)
  1. TYLEX /00116401/ [Concomitant]
     Active Substance: ACETAMINOPHEN\CODEINE PHOSPHATE
     Indication: PAIN
     Dosage: UNK
     Dates: start: 2013
  2. MORPHINE [Concomitant]
     Active Substance: MORPHINE
     Indication: PAIN
     Dosage: UNK, AS NEEDED
  3. SUTENT [Suspect]
     Active Substance: SUNITINIB MALATE
     Dosage: 25 MG, CONTINUOUS
     Route: 048
     Dates: start: 2014, end: 20140705
  4. BUSCOPAN [Concomitant]
     Active Substance: BUTYLSCOPOLAMINE BROMIDE
     Indication: PAIN
     Dosage: UNK
     Dates: start: 2013
  5. SUTENT [Suspect]
     Active Substance: SUNITINIB MALATE
     Indication: GASTROINTESTINAL STROMAL TUMOUR
     Dosage: 12.5 MG, CONTINUOUS
     Route: 048
     Dates: start: 2014, end: 20140705
  6. VITAMIN B12 [Concomitant]
     Active Substance: CYANOCOBALAMIN
     Dosage: 1X/MONTH
     Dates: start: 2006

REACTIONS (10)
  - Peripheral swelling [Not Recovered/Not Resolved]
  - Skin fissures [Recovered/Resolved]
  - Malaise [Unknown]
  - Gait disturbance [Not Recovered/Not Resolved]
  - Dyspepsia [Not Recovered/Not Resolved]
  - Gastrointestinal stromal tumour [Fatal]
  - Abdominal distension [Not Recovered/Not Resolved]
  - Disease progression [Fatal]
  - Dysphagia [Not Recovered/Not Resolved]
  - Dyspnoea [Not Recovered/Not Resolved]

NARRATIVE: CASE EVENT DATE: 201409
